FAERS Safety Report 9368886 (Version 1)
Quarter: 2013Q2

REPORT INFORMATION
  Report Type: Report from Study
  Country: CH (occurrence: CH)
  Receive Date: 20130626
  Receipt Date: 20130626
  Transmission Date: 20140414
  Serious: Yes (Hospitalization)
  Sender: FDA-Public Use
  Company Number: CH-ROCHE-1237640

PATIENT
  Age: 67 Year
  Sex: Male

DRUGS (2)
  1. BEVACIZUMAB [Suspect]
     Indication: GLIOBLASTOMA
     Dosage: LAST DOSE PRIOR TO SAE : 09/NOV/2012
     Route: 042
     Dates: start: 20121109
  2. LEVETIRACETAM [Concomitant]
     Route: 065
     Dates: start: 20110926

REACTIONS (2)
  - Encephalitis [Recovered/Resolved]
  - Epilepsy [Recovered/Resolved]
